FAERS Safety Report 8460135-3 (Version None)
Quarter: 2012Q2

REPORT INFORMATION
  Report Type: 
  Country: None (occurrence: None)
  Receive Date: 20120323
  Receipt Date: 20111013
  Transmission Date: 20120825
  Serious: Yes (Hospitalization)
  Sender: FDA-Public Use
  Company Number: 163-21880-11101561

PATIENT
  Age: 44 Year
  Sex: Male

DRUGS (6)
  1. REVLIMID [Suspect]
     Indication: AMYLOIDOSIS
     Dosage: 5 MG, DAILY FOR 28 DAYS, PO
     Route: 048
     Dates: start: 20110804
  2. ZOFRAN [Concomitant]
  3. OMEPRAZOLE [Concomitant]
  4. COUMADIN [Concomitant]
  5. RENAGEL [Concomitant]
  6. RENAL MULTIVITAMIN FORMULA (DAILY MULTIVITAMIN) [Concomitant]

REACTIONS (1)
  - PLATELET COUNT DECREASED [None]
